FAERS Safety Report 6633809-4 (Version None)
Quarter: 2010Q1

REPORT INFORMATION
  Report Type: 
  Country: None (occurrence: None)
  Receive Date: 20100315
  Receipt Date: 20100309
  Transmission Date: 20100710
  Serious: Yes (Hospitalization)
  Sender: FDA-Public Use
  Company Number: FR-WYE-G05712510

PATIENT
  Sex: Male

DRUGS (5)
  1. TAZOCILLINE [Suspect]
     Dosage: UNKNOWN
     Route: 042
     Dates: start: 20100116, end: 20100208
  2. PARACETAMOL [Concomitant]
     Dosage: UNKNOWN
  3. CALCIPARINE [Concomitant]
     Dosage: UNKNOWN
  4. CIPROFLOXACIN HCL [Suspect]
     Dosage: UNKNOWN
     Route: 042
     Dates: start: 20100119, end: 20100208
  5. NEXIUM [Concomitant]
     Dosage: UNKNOWN
     Dates: start: 20100127

REACTIONS (3)
  - FEBRILE NEUTROPENIA [None]
  - LEUKOPENIA [None]
  - RESPIRATORY SYNCYTIAL VIRUS TEST POSITIVE [None]
